FAERS Safety Report 9411720 (Version 1)
Quarter: 2013Q3

REPORT INFORMATION
  Report Type: Spontaneous
  Country: None (occurrence: US)
  Receive Date: 20130722
  Receipt Date: 20130722
  Transmission Date: 20140515
  Serious: Yes (Death)
  Sender: FDA-Public Use
  Company Number: US-COVIDIEN/TYCO HEALTHCARE/MALLINCKRODT-T201203464

PATIENT
  Age: 52 Year
  Sex: Male

DRUGS (2)
  1. MORPHINE [Suspect]
     Indication: BACK PAIN
  2. OXYCONTIN [Suspect]
     Indication: BACK PAIN

REACTIONS (2)
  - Road traffic accident [Fatal]
  - Somnolence [Fatal]
